FAERS Safety Report 5130343-8 (Version None)
Quarter: 2006Q4

REPORT INFORMATION
  Report Type: 
  Country: None (occurrence: None)
  Receive Date: 20061019
  Receipt Date: 20060831
  Transmission Date: 20070319
  Serious: Yes (Hospitalization)
  Sender: FDA-Public Use
  Company Number: PHBS2006BR13442

PATIENT
  Age: 50 Year
  Sex: Female
  Weight: 88 kg

DRUGS (8)
  1. POTASSIUM CHLORIDE [Concomitant]
     Dosage: 2 DF, QOD
     Route: 048
  2. POTASSIUM CHLORIDE [Concomitant]
     Dosage: 4 DF, UNK
     Route: 048
  3. FUROSEMIDE [Suspect]
     Indication: ASTHMA
  4. PREDNISONE TAB [Suspect]
     Indication: ASTHMA
  5. LASIX [Concomitant]
     Indication: HYPERTENSION
  6. FORASEQ [Concomitant]
     Indication: ASTHMA
  7. SLOW-K [Suspect]
     Dosage: 600 MG, TID
     Route: 048
  8. SLOW-K [Suspect]
     Dosage: 2.4 G/DAY
     Route: 048
     Dates: start: 20060831

REACTIONS (4)
  - DRUG INEFFECTIVE [None]
  - DRUG INTERACTION [None]
  - GALLBLADDER OPERATION [None]
  - MUSCLE SPASMS [None]
